FAERS Safety Report 6164409-0 (Version None)
Quarter: 2009Q2

REPORT INFORMATION
  Report Type: 
  Country: None (occurrence: None)
  Receive Date: 20090421
  Receipt Date: 20090407
  Transmission Date: 20091009
  Serious: Yes (Other)
  Sender: FDA-Public Use
  Company Number: 2009US000590

PATIENT

DRUGS (8)
  1. MYCAMINE [Suspect]
     Indication: SYSTEMIC CANDIDA
     Dosage: 400 MG
     Dates: start: 20090222, end: 20090223
  2. CITALOPRAM HYDROBROMIDE [Concomitant]
  3. CEFEPIME [Concomitant]
  4. PANTOPRAZOLE SODIUM [Concomitant]
  5. TOBRAMYCIN [Concomitant]
  6. PROPOFOL [Concomitant]
  7. NOREPINEPHRINE BITARTRATE [Concomitant]
  8. FENTANYL-100 [Concomitant]

REACTIONS (7)
  - ACCIDENTAL OVERDOSE [None]
  - ALANINE AMINOTRANSFERASE INCREASED [None]
  - ASPARTATE AMINOTRANSFERASE INCREASED [None]
  - BLOOD ALKALINE PHOSPHATASE INCREASED [None]
  - BLOOD LACTATE DEHYDROGENASE INCREASED [None]
  - DRUG PRESCRIBING ERROR [None]
  - RENAL FAILURE [None]
